FAERS Safety Report 24772523 (Version 1)
Quarter: 2024Q4

REPORT INFORMATION
  Report Type: Spontaneous
  Country: BR (occurrence: BR)
  Receive Date: 20241224
  Receipt Date: 20241224
  Transmission Date: 20250115
  Serious: Yes (Death, Hospitalization, Other)
  Sender: NOVITIUM PHARMA
  Company Number: BR-NOVITIUMPHARMA-2024BRNVP02936

PATIENT
  Age: 26 Year
  Sex: Female

DRUGS (30)
  1. LEVOFLOXACIN [Suspect]
     Active Substance: LEVOFLOXACIN
     Indication: Pulmonary tuberculosis
  2. PYRAZINAMIDE [Suspect]
     Active Substance: PYRAZINAMIDE
     Indication: Pulmonary tuberculosis
     Dates: start: 201701
  3. PYRAZINAMIDE [Suspect]
     Active Substance: PYRAZINAMIDE
     Dates: start: 201710
  4. PYRAZINAMIDE [Suspect]
     Active Substance: PYRAZINAMIDE
     Dates: start: 201809
  5. PYRAZINAMIDE [Suspect]
     Active Substance: PYRAZINAMIDE
     Dates: start: 201910
  6. PYRAZINAMIDE [Suspect]
     Active Substance: PYRAZINAMIDE
     Dates: start: 202102
  7. RIFAMPIN [Concomitant]
     Active Substance: RIFAMPIN
     Indication: Pulmonary tuberculosis
     Dates: start: 201701, end: 201705
  8. RIFAMPIN [Concomitant]
     Active Substance: RIFAMPIN
     Dates: start: 201710, end: 201804
  9. RIFAMPIN [Concomitant]
     Active Substance: RIFAMPIN
     Dates: start: 201809, end: 201907
  10. RIFAMPIN [Concomitant]
     Active Substance: RIFAMPIN
     Dates: start: 201910
  11. RIFAMPIN [Concomitant]
     Active Substance: RIFAMPIN
     Dates: start: 202102
  12. RIFAMPIN [Concomitant]
     Active Substance: RIFAMPIN
     Dates: start: 202202
  13. ETHAMBUTOL [Concomitant]
     Active Substance: ETHAMBUTOL HYDROCHLORIDE
     Indication: Pulmonary tuberculosis
     Dates: start: 201701
  14. ETHAMBUTOL [Concomitant]
     Active Substance: ETHAMBUTOL HYDROCHLORIDE
     Dates: start: 201710
  15. ETHAMBUTOL [Concomitant]
     Active Substance: ETHAMBUTOL HYDROCHLORIDE
     Dates: start: 201809
  16. ETHAMBUTOL [Concomitant]
     Active Substance: ETHAMBUTOL HYDROCHLORIDE
     Dates: start: 201810
  17. ETHAMBUTOL [Concomitant]
     Active Substance: ETHAMBUTOL HYDROCHLORIDE
     Dates: start: 202102
  18. ETHAMBUTOL [Concomitant]
     Active Substance: ETHAMBUTOL HYDROCHLORIDE
     Dates: start: 202202
  19. ISONIAZID [Concomitant]
     Active Substance: ISONIAZID
     Indication: Pulmonary tuberculosis
     Dates: start: 201701
  20. ISONIAZID [Concomitant]
     Active Substance: ISONIAZID
     Dates: start: 201710, end: 201804
  21. ISONIAZID [Concomitant]
     Active Substance: ISONIAZID
     Dates: start: 201809
  22. ISONIAZID [Concomitant]
     Active Substance: ISONIAZID
     Dates: start: 201910
  23. ISONIAZID [Concomitant]
     Active Substance: ISONIAZID
     Dates: start: 202102
  24. ISONIAZID [Concomitant]
     Active Substance: ISONIAZID
     Dates: start: 202202
  25. BEDAQUILINE [Concomitant]
     Active Substance: BEDAQUILINE
     Indication: Pulmonary tuberculosis
  26. LINEZOLID [Concomitant]
     Active Substance: LINEZOLID
     Indication: Pulmonary tuberculosis
  27. TERIZIDONE [Concomitant]
     Active Substance: TERIZIDONE
     Indication: Pulmonary tuberculosis
  28. AMIKACIN [Concomitant]
     Active Substance: AMIKACIN
     Indication: Pulmonary tuberculosis
  29. AMOXICILLIN\CLAVULANIC ACID [Concomitant]
     Active Substance: AMOXICILLIN\CLAVULANIC ACID
     Indication: Pulmonary tuberculosis
  30. MEROPENEM [Concomitant]
     Active Substance: MEROPENEM
     Indication: Pulmonary tuberculosis

REACTIONS (2)
  - Treatment noncompliance [Fatal]
  - Respiratory failure [Unknown]
